FAERS Safety Report 13561439 (Version 1)
Quarter: 2017Q2

REPORT INFORMATION
  Report Type: Spontaneous
  Country: US (occurrence: US)
  Receive Date: 20170518
  Receipt Date: 20170518
  Transmission Date: 20170830
  Serious: No
  Sender: FDA-Public Use
  Company Number: US-BIOGEN-2017BI00401900

PATIENT
  Sex: Female

DRUGS (1)
  1. TECFIDERA [Suspect]
     Active Substance: DIMETHYL FUMARATE
     Indication: MULTIPLE SCLEROSIS
     Dosage: MAINTENANCE DOSE
     Route: 048
     Dates: start: 20151224

REACTIONS (5)
  - Pain [Not Recovered/Not Resolved]
  - Fall [Recovered/Resolved]
  - Memory impairment [Unknown]
  - Multiple sclerosis [Not Recovered/Not Resolved]
  - Malaise [Recovered/Resolved]
